FAERS Safety Report 7907429-5 (Version None)
Quarter: 2011Q4

REPORT INFORMATION
  Report Type: 
  Country: None (occurrence: None)
  Receive Date: 20111110
  Receipt Date: 20111102
  Transmission Date: 20120403
  Serious: Yes (Hospitalization, Other)
  Sender: FDA-Public Use
  Company Number: US-ABBOTT-11P-163-0871723-00

PATIENT
  Sex: Female

DRUGS (2)
  1. HUMIRA [Suspect]
     Indication: PSORIATIC ARTHROPATHY
     Route: 058
     Dates: start: 20060101
  2. HUMIRA [Suspect]
     Indication: PSORIASIS

REACTIONS (6)
  - INFECTION [None]
  - DEVICE MALFUNCTION [None]
  - WRONG TECHNIQUE IN DRUG USAGE PROCESS [None]
  - ABDOMINAL HERNIA [None]
  - CARDIAC FAILURE CONGESTIVE [None]
  - WHITE BLOOD CELL COUNT INCREASED [None]
